FAERS Safety Report 5477171-1 (Version None)
Quarter: 2007Q4

REPORT INFORMATION
  Report Type: 
  Country: None (occurrence: None)
  Receive Date: 20071004
  Receipt Date: 20070928
  Transmission Date: 20080405
  Serious: Yes (Hospitalization)
  Sender: FDA-Public Use
  Company Number: A0685001A

PATIENT
  Age: 77 Year
  Sex: Female

DRUGS (5)
  1. ADVAIR DISKUS 100/50 [Suspect]
     Indication: CHRONIC OBSTRUCTIVE PULMONARY DISEASE
     Dosage: 1PUFF TWICE PER DAY
     Route: 055
     Dates: start: 20070803
  2. PLAVIX [Concomitant]
  3. NORVASC [Concomitant]
  4. ULTRAM [Concomitant]
  5. LORAZEPAM [Concomitant]

REACTIONS (15)
  - ARTHRALGIA [None]
  - ASTHENIA [None]
  - ASTHENOPIA [None]
  - DRUG ADMINISTRATION ERROR [None]
  - EYE DISORDER [None]
  - EYE HAEMORRHAGE [None]
  - EYE IRRITATION [None]
  - INTRAOCULAR PRESSURE INCREASED [None]
  - MUSCULAR WEAKNESS [None]
  - MYALGIA [None]
  - OCULAR DISCOMFORT [None]
  - OCULAR HYPERAEMIA [None]
  - PALLOR [None]
  - THERAPEUTIC RESPONSE UNEXPECTED [None]
  - VISUAL DISTURBANCE [None]
